FAERS Safety Report 20381814 (Version 2)
Quarter: 2022Q1

REPORT INFORMATION
  Report Type: Spontaneous
  Country: SK (occurrence: SK)
  Receive Date: 20220127
  Receipt Date: 20220310
  Transmission Date: 20220424
  Serious: Yes (Hospitalization, Other)
  Sender: FDA-Public Use
  Company Number: SK-TEVA-2022-SK-2002977

PATIENT
  Age: 22 Year
  Sex: Male

DRUGS (3)
  1. DICLOFENAC [Interacting]
     Active Substance: DICLOFENAC
     Indication: Headache
     Dosage: 100 MILLIGRAM DAILY;
     Route: 048
  2. ALPRAZOLAM [Interacting]
     Active Substance: ALPRAZOLAM
     Indication: Anxiety
     Route: 048
  3. IBUPROFEN [Interacting]
     Active Substance: IBUPROFEN
     Indication: Headache
     Route: 048

REACTIONS (3)
  - Dystonia [Recovered/Resolved]
  - Drug interaction [Unknown]
  - Alcohol interaction [Unknown]
